FAERS Safety Report 19294437 (Version 1)
Quarter: 2021Q2

REPORT INFORMATION
  Report Type: Spontaneous
  Country: US (occurrence: US)
  Receive Date: 20210524
  Receipt Date: 20210524
  Transmission Date: 20210717
  Serious: Yes (Hospitalization)
  Sender: FDA-Public Use
  Company Number: None

PATIENT
  Age: 41 Year
  Sex: Female
  Weight: 76.4 kg

DRUGS (1)
  1. TRODELVY [Suspect]
     Active Substance: SACITUZUMAB GOVITECAN-HZIY
     Indication: BREAST CANCER METASTATIC
     Dosage: ?          OTHER FREQUENCY:1 AND 8 Q21 DAYS;?
     Route: 042
     Dates: start: 20201106, end: 20210509

REACTIONS (1)
  - Disseminated varicella [None]

NARRATIVE: CASE EVENT DATE: 20210513
